FAERS Safety Report 5051712-0 (Version None)
Quarter: 2006Q3

REPORT INFORMATION
  Report Type: 
  Country: None (occurrence: None)
  Receive Date: 20060712
  Receipt Date: 20060712
  Transmission Date: 20061208
  Serious: Yes (Hospitalization)
  Sender: FDA-Public Use
  Company Number: None

PATIENT
  Age: 53 Year
  Sex: Male
  Weight: 79 kg

DRUGS (6)
  1. ZOSYN [Suspect]
     Indication: GASTROINTESTINAL INFECTION
     Dosage: Q6H IV
     Route: 042
     Dates: start: 20060303, end: 20060406
  2. ZOSYN [Suspect]
     Indication: PNEUMONIA
     Dosage: Q6H IV
     Route: 042
     Dates: start: 20060303, end: 20060406
  3. VANCOMYCIN [Suspect]
     Indication: PNEUMONIA
     Dosage: Q12 H IV
     Route: 042
     Dates: start: 20060314, end: 20060319
  4. VANCOMYCIN [Suspect]
     Indication: PNEUMONIA
     Dosage: Q12 H IV
     Route: 042
     Dates: start: 20060403, end: 20060413
  5. CEFEPIME [Suspect]
     Indication: GASTROINTESTINAL INFECTION
  6. CEFEPIME [Suspect]
     Indication: PNEUMONIA

REACTIONS (2)
  - CLOSTRIDIAL INFECTION [None]
  - CLOSTRIDIUM DIFFICILE COLITIS [None]
